FAERS Safety Report 6750924-5 (Version None)
Quarter: 2010Q2

REPORT INFORMATION
  Report Type: 
  Country: None (occurrence: None)
  Receive Date: 20100602
  Receipt Date: 20100528
  Transmission Date: 20101027
  Serious: Yes (Other)
  Sender: FDA-Public Use
  Company Number: DE-WYE-G06190510

PATIENT

DRUGS (1)
  1. TREVILOR RETARD [Suspect]
     Dosage: UNKNOWN
     Route: 048

REACTIONS (1)
  - GASTRIC CANCER [None]
